FAERS Safety Report 8349090-4 (Version None)
Quarter: 2012Q2

REPORT INFORMATION
  Report Type: 
  Country: None (occurrence: None)
  Receive Date: 20120510
  Receipt Date: 20120501
  Transmission Date: 20120825
  Serious: Yes (Other)
  Sender: FDA-Public Use
  Company Number: US-JNJFOC-20120403867

PATIENT
  Sex: Female
  Weight: 51.71 kg

DRUGS (1)
  1. XARELTO [Suspect]
     Indication: KNEE ARTHROPLASTY
     Route: 048
     Dates: start: 20120322, end: 20120329

REACTIONS (2)
  - POST PROCEDURAL INFECTION [None]
  - HAEMARTHROSIS [None]
